FAERS Safety Report 6183950-8 (Version None)
Quarter: 2009Q2

REPORT INFORMATION
  Report Type: 
  Country: None (occurrence: None)
  Receive Date: 20090508
  Receipt Date: 20090504
  Transmission Date: 20091009
  Serious: Yes (Life-Threatening, Hospitalization)
  Sender: FDA-Public Use
  Company Number: DE-B.I. PHARMACEUTICALS,INC./RIDGEFIELD-2009-DE-03678BY

PATIENT
  Age: 67 Year
  Sex: Female

DRUGS (12)
  1. TELMISARTAN [Suspect]
     Indication: HYPERTENSION
     Dosage: 92.5MG
     Route: 048
     Dates: start: 20000101
  2. ACETYLSALICYLIC ACID SRT [Suspect]
     Indication: ISCHAEMIC HEART DISEASE PROPHYLAXIS
     Dosage: 100MG
     Route: 048
     Dates: start: 20000101
  3. LITHIUM CARBONATE [Suspect]
     Indication: DEPRESSION
     Dosage: 2ANZ
     Route: 048
     Dates: start: 20040101, end: 20081108
  4. FURANTHRIL [Suspect]
     Indication: HYPERTENSION
     Dosage: 40MG
     Route: 048
     Dates: start: 20040101, end: 20081108
  5. TRIMIPRAMINE MALEATE [Suspect]
     Indication: DEPRESSION
     Dosage: 100MG
     Route: 048
     Dates: start: 20040101
  6. AKINETON [Concomitant]
     Indication: TREMOR
     Dosage: 2MG
     Route: 048
     Dates: start: 20070101
  7. ALLOPURINOL [Concomitant]
     Indication: HYPERURICAEMIA
     Dosage: 100MG
     Route: 048
     Dates: start: 20000101, end: 20081108
  8. BERLTHYROX [Concomitant]
     Indication: HYPOTHYROIDISM
     Dosage: 150MG
     Route: 048
     Dates: start: 19990101
  9. BISOPROLOL [Concomitant]
     Indication: HYPERTENSION
     Dosage: 2ANZ
     Route: 048
     Dates: start: 20000101
  10. NOVONORM [Concomitant]
     Indication: TYPE 2 DIABETES MELLITUS
     Route: 048
     Dates: start: 20080705
  11. PANTOZOL [Concomitant]
     Indication: PROPHYLAXIS AGAINST GASTROINTESTINAL ULCER
     Dosage: 40MG
     Route: 048
     Dates: start: 20080705
  12. METFORMIN [Concomitant]
     Indication: DIABETES MELLITUS
     Dates: end: 20080704

REACTIONS (1)
  - DELIRIUM [None]
